FAERS Safety Report 6200675-0 (Version None)
Quarter: 2009Q2

REPORT INFORMATION
  Report Type: 
  Country: None (occurrence: None)
  Receive Date: 20090522
  Receipt Date: 20090521
  Transmission Date: 20091009
  Serious: Yes (Death)
  Sender: FDA-Public Use
  Company Number: US-ASTRAZENECA-2009UW12852

PATIENT
  Age: 68 Year
  Sex: Female

DRUGS (3)
  1. ARIMIDEX [Suspect]
     Indication: BREAST CANCER
     Route: 048
  2. ZOMETA [Suspect]
     Route: 065
  3. PAIN MEDICATIONS [Suspect]
     Route: 065

REACTIONS (3)
  - ABDOMINAL DISTENSION [None]
  - DEATH [None]
  - JOINT SWELLING [None]
